FAERS Safety Report 13484554 (Version 7)
Quarter: 2018Q2

REPORT INFORMATION
  Report Type: Spontaneous
  Country: US (occurrence: US)
  Receive Date: 20170426
  Receipt Date: 20180411
  Transmission Date: 20180711
  Serious: Yes (Other)
  Sender: FDA-Public Use
  Company Number: US-PFIZER INC-2017171436

PATIENT
  Age: 69 Year
  Sex: Female
  Weight: 47.62 kg

DRUGS (4)
  1. IBRANCE [Suspect]
     Active Substance: PALBOCICLIB
     Indication: BREAST CANCER METASTATIC
     Dosage: 125 MG, CYCLIC (DAY 1 TO DAY 21 EVERY 28 DAYS)
     Route: 048
     Dates: start: 20170324, end: 2017
  2. IBRANCE [Suspect]
     Active Substance: PALBOCICLIB
     Dosage: 125 MG, UNK
     Route: 048
     Dates: start: 201707, end: 20180217
  3. IBRANCE [Suspect]
     Active Substance: PALBOCICLIB
     Dosage: 125 MG, CYCLIC (DAY 1 TO DAY 21 EVERY 28 DAYS)
     Route: 048
  4. IBRANCE [Suspect]
     Active Substance: PALBOCICLIB
     Dosage: 125 MG, CYCLIC (DAY 1 TO DAY 21 EVERY 28 DAYS)
     Route: 048
     Dates: start: 2017, end: 20170413

REACTIONS (12)
  - Rash macular [Unknown]
  - Madarosis [Unknown]
  - Blood magnesium decreased [Unknown]
  - X-ray abnormal [Unknown]
  - Neutropenia [Unknown]
  - Alopecia [Unknown]
  - Scab [Unknown]
  - Drug dose omission [Unknown]
  - Bone scan abnormal [Unknown]
  - Fatigue [Unknown]
  - Nasal discomfort [Unknown]
  - Epistaxis [Unknown]
